FAERS Safety Report 19175739 (Version 4)
Quarter: 2021Q2

REPORT INFORMATION
  Report Type: Report from Study
  Country: CN (occurrence: CN)
  Receive Date: 20210423
  Receipt Date: 20210514
  Transmission Date: 20210717
  Serious: Yes (Death)
  Sender: FDA-Public Use
  Company Number: CN-EISAI MEDICAL RESEARCH-EC-2021-091780

PATIENT
  Age: 62 Year
  Sex: Female
  Weight: 39 kg

DRUGS (15)
  1. OXYCODONE HYDROCHLORIDE. [Concomitant]
     Active Substance: OXYCODONE HYDROCHLORIDE
     Dates: start: 20210115, end: 20210418
  2. PHELLODENDRON [Concomitant]
     Dates: start: 20210125, end: 20210418
  3. EARTHWORM (+) OPIUM POPPY [Concomitant]
     Dates: start: 20210125, end: 20210418
  4. METHYLSILANETRIOL [Concomitant]
     Dates: start: 20210125, end: 20210418
  5. SHUANG QI GAN JUN SI LIAN HUO JUN PIAN [Concomitant]
     Dates: start: 20210220, end: 20210418
  6. PEMBROLIZUMAB. [Suspect]
     Active Substance: PEMBROLIZUMAB
     Indication: TRANSITIONAL CELL CARCINOMA
     Route: 041
     Dates: start: 20210118, end: 20210319
  7. DEXAMETHASONE. [Concomitant]
     Active Substance: DEXAMETHASONE
     Dates: start: 20210317, end: 20210418
  8. DEXAMETHASONE ACETATE [Concomitant]
     Active Substance: DEXAMETHASONE ACETATE
     Dates: start: 20210317, end: 20210408
  9. LENVATINIB [Suspect]
     Active Substance: LENVATINIB
     Indication: TRANSITIONAL CELL CARCINOMA
     Route: 048
     Dates: start: 20210118, end: 20210418
  10. CHINESE SKULLCAP [Concomitant]
     Dates: start: 20210125, end: 20210418
  11. PEMBROLIZUMAB. [Suspect]
     Active Substance: PEMBROLIZUMAB
     Route: 041
     Dates: start: 20210409, end: 20210409
  12. OXYCODONE HYDROCHLORIDE. [Concomitant]
     Active Substance: OXYCODONE HYDROCHLORIDE
     Dates: start: 20201228
  13. PREGABALIN. [Concomitant]
     Active Substance: PREGABALIN
     Dates: start: 20210105, end: 20210418
  14. COPTIS [Concomitant]
     Dates: start: 20210125, end: 20210418
  15. ZHI FANG RU AN JI SUAN PU TAO TANG ZHU SHE YE [Concomitant]
     Dates: start: 20210406, end: 20210408

REACTIONS (1)
  - Death [Fatal]

NARRATIVE: CASE EVENT DATE: 20210418
